FAERS Safety Report 8383749-8 (Version None)
Quarter: 2012Q1

REPORT INFORMATION
  Report Type: 
  Country: None (occurrence: None)
  Receive Date: 20120323
  Receipt Date: 20110325
  Transmission Date: 20120608
  Serious: Yes (Hospitalization, Other)
  Sender: FDA-Public Use
  Company Number: 163-21880-11030750

PATIENT
  Age: 67 Year
  Sex: Female

DRUGS (6)
  1. VITAMIN D [Concomitant]
  2. REVLIMID [Suspect]
     Indication: MULTIPLE MYELOMA
     Dosage: 25 MG, 1 IN 1 D, PO, 10 MG, 1 IN 1 D, PO
     Route: 048
     Dates: start: 20110223
  3. REVLIMID [Suspect]
     Indication: MULTIPLE MYELOMA
     Dosage: 25 MG, 1 IN 1 D, PO, 10 MG, 1 IN 1 D, PO
     Route: 048
     Dates: start: 20100223, end: 20110223
  4. CALCIUM CARBONATE [Concomitant]
  5. ASPIRIN [Concomitant]
  6. ZOMETA [Concomitant]

REACTIONS (3)
  - THROMBOCYTOPENIA [None]
  - COMPRESSION FRACTURE [None]
  - PAIN IN EXTREMITY [None]
